FAERS Safety Report 9402630 (Version 1)
Quarter: 2013Q3

REPORT INFORMATION
  Report Type: Spontaneous
  Country: US (occurrence: US)
  Receive Date: 20130716
  Receipt Date: 20130716
  Transmission Date: 20140515
  Serious: Yes (Other)
  Sender: FDA-Public Use
  Company Number: US-ASTRAZENECA-2013SE51098

PATIENT
  Age: 61 Year
  Sex: Male
  Weight: 77.1 kg

DRUGS (7)
  1. CASODEX [Suspect]
     Route: 048
     Dates: start: 201302, end: 20130614
  2. FIRMAGON [Suspect]
     Indication: PROSTATE CANCER
     Dosage: 240 MG, 120 MG X 2
     Route: 065
     Dates: start: 20130222
  3. FIRMAGON [Suspect]
     Indication: PROSTATE CANCER
     Dosage: 80 MG
     Route: 065
     Dates: start: 20130327
  4. FIRMAGON [Suspect]
     Indication: PROSTATE CANCER
     Dosage: 80 MG
     Route: 065
     Dates: start: 20130501
  5. FIRMAGON [Suspect]
     Indication: PROSTATE CANCER
     Dosage: 80 MG
     Route: 065
     Dates: start: 20130605
  6. AVODART [Concomitant]
     Dates: start: 201302
  7. AVODART [Concomitant]
     Dates: start: 20130614

REACTIONS (2)
  - Metastases to bone [Unknown]
  - Metastases to lymph nodes [Unknown]
